FAERS Safety Report 5442613-4 (Version None)
Quarter: 2007Q3

REPORT INFORMATION
  Report Type: 
  Country: None (occurrence: None)
  Receive Date: 20070904
  Receipt Date: 20070816
  Transmission Date: 20080115
  Serious: Yes (Other)
  Sender: FDA-Public Use
  Company Number: PHBS2007JP13602

PATIENT
  Sex: Female

DRUGS (3)
  1. NATEGLINIDE [Suspect]
     Indication: DIABETES MELLITUS
     Dosage: 270 MG, UNK
     Route: 048
  2. MICARDIS [Concomitant]
     Dosage: 40MG, UNK
  3. BASEN [Concomitant]
     Dosage: 0.6 MG, UNK

REACTIONS (2)
  - DIZZINESS [None]
  - PANCREATITIS [None]
